FAERS Safety Report 9908885 (Version 1)
Quarter: 2014Q1

REPORT INFORMATION
  Report Type: Spontaneous
  Country: US (occurrence: None)
  Receive Date: 20140212
  Receipt Date: 20140212
  Transmission Date: 20141002
  Serious: Yes (Other)
  Sender: FDA-Public Use
  Company Number: None

PATIENT
  Sex: Male

DRUGS (1)
  1. HYLAND^S CALMS FORTE [Suspect]
     Indication: SLEEP DISORDER

REACTIONS (1)
  - Convulsion [None]
